FAERS Safety Report 15596293 (Version 9)
Quarter: 2019Q3

REPORT INFORMATION
  Report Type: Report from Study
  Country: DE (occurrence: DE)
  Receive Date: 20181107
  Receipt Date: 20190930
  Transmission Date: 20191004
  Serious: Yes (Death, Life-Threatening, Hospitalization, Other)
  Sender: FDA-Public Use
  Company Number: PHHY2018DE145918

PATIENT
  Sex: Female
  Weight: 75 kg

DRUGS (3)
  1. FEMARA [Suspect]
     Active Substance: LETROZOLE
     Indication: BREAST CANCER METASTATIC
     Dosage: 2 OT, UNK
     Route: 048
     Dates: start: 20181008, end: 20181226
  2. KISQALI [Suspect]
     Active Substance: RIBOCICLIB
     Dosage: 400 MG, QD
     Route: 048
     Dates: start: 20181105, end: 20181226
  3. KISQALI [Suspect]
     Active Substance: RIBOCICLIB
     Indication: BREAST CANCER METASTATIC
     Dosage: 600 OT, UNK
     Route: 048
     Dates: start: 20181008

REACTIONS (10)
  - Neutropenia [Recovered/Resolved]
  - Weight decreased [Not Recovered/Not Resolved]
  - Blood creatinine increased [Unknown]
  - C-reactive protein increased [Fatal]
  - Pneumothorax [Fatal]
  - Leukopenia [Recovered/Resolved]
  - Thrombocytopenia [Recovered/Resolved]
  - Aspartate aminotransferase increased [Not Recovered/Not Resolved]
  - Multiple organ dysfunction syndrome [Fatal]
  - General physical health deterioration [Fatal]

NARRATIVE: CASE EVENT DATE: 20181030
